FAERS Safety Report 21598096 (Version 4)
Quarter: 2023Q2

REPORT INFORMATION
  Report Type: Report from Study
  Country: US (occurrence: US)
  Receive Date: 20221115
  Receipt Date: 20230512
  Transmission Date: 20230721
  Serious: Yes (Other)
  Sender: FDA-Public Use
  Company Number: US-TAKEDA-2022TUS083755

PATIENT
  Age: 26 Year
  Sex: Female

DRUGS (2)
  1. VON WILLEBRAND FACTOR HUMAN [Suspect]
     Active Substance: VON WILLEBRAND FACTOR HUMAN
     Indication: Haemorrhage
     Dosage: 2600 INTERNATIONAL UNIT
     Route: 042
  2. VON WILLEBRAND FACTOR HUMAN [Suspect]
     Active Substance: VON WILLEBRAND FACTOR HUMAN
     Indication: Heavy menstrual bleeding
     Dosage: 2600 INTERNATIONAL UNIT
     Route: 065

REACTIONS (5)
  - Heavy menstrual bleeding [Not Recovered/Not Resolved]
  - Haemarthrosis [Recovered/Resolved]
  - Epistaxis [Unknown]
  - Muscle haemorrhage [Recovered/Resolved]
  - Arthropathy [Unknown]

NARRATIVE: CASE EVENT DATE: 20221023
